FAERS Safety Report 25560712 (Version 3)
Quarter: 2025Q3

REPORT INFORMATION
  Report Type: Report from Study
  Country: US (occurrence: US)
  Receive Date: 20250715
  Receipt Date: 20250722
  Transmission Date: 20251020
  Serious: Yes (Other)
  Sender: ABBVIE
  Company Number: US-ABBVIE-6360335

PATIENT
  Age: 76 Year
  Sex: Female
  Weight: 49 kg

DRUGS (9)
  1. VYALEV [Suspect]
     Active Substance: FOSCARBIDOPA\FOSLEVODOPA
     Indication: Parkinson^s disease
     Route: 058
     Dates: start: 20250703
  2. VYALEV [Suspect]
     Active Substance: FOSCARBIDOPA\FOSLEVODOPA
     Route: 058
     Dates: start: 20250708
  3. VITAMIN B12 [Concomitant]
     Active Substance: CYANOCOBALAMIN
     Indication: Product used for unknown indication
  4. LIDOCAINE HYDROCHLORIDE [Concomitant]
     Active Substance: LIDOCAINE HYDROCHLORIDE
     Indication: Product used for unknown indication
  5. VITAMIN D3 [Concomitant]
     Active Substance: CHOLECALCIFEROL
     Indication: Product used for unknown indication
  6. ACETAMINOPHEN [Concomitant]
     Active Substance: ACETAMINOPHEN
     Indication: Product used for unknown indication
  7. MIRALAX [Concomitant]
     Active Substance: POLYETHYLENE GLYCOL 3350
     Indication: Product used for unknown indication
  8. ZOLOFT [Concomitant]
     Active Substance: SERTRALINE HYDROCHLORIDE
     Indication: Depression
  9. TROSPIUM CHLORIDE [Concomitant]
     Active Substance: TROSPIUM CHLORIDE
     Indication: Product used for unknown indication

REACTIONS (19)
  - Catatonia [Recovering/Resolving]
  - Drug ineffective [Recovering/Resolving]
  - Injection site pain [Recovered/Resolved]
  - Dyskinesia [Recovering/Resolving]
  - On and off phenomenon [Recovering/Resolving]
  - Hallucination, visual [Unknown]
  - Hallucination, auditory [Unknown]
  - Depression [Recovering/Resolving]
  - Catheter site irritation [Unknown]
  - Catheter site erythema [Recovered/Resolved]
  - Catheter site pruritus [Unknown]
  - Balance disorder [Recovering/Resolving]
  - Asthenia [Unknown]
  - Musculoskeletal disorder [Unknown]
  - Feeling abnormal [Unknown]
  - Pruritus [Unknown]
  - Arthropod bite [Unknown]
  - Erythema [Unknown]
  - Mobility decreased [Not Recovered/Not Resolved]

NARRATIVE: CASE EVENT DATE: 20250701
